FAERS Safety Report 21390752 (Version 2)
Quarter: 2022Q4

REPORT INFORMATION
  Report Type: Report from Study
  Country: US (occurrence: US)
  Receive Date: 20220929
  Receipt Date: 20221027
  Transmission Date: 20230112
  Serious: Yes (Other)
  Sender: FDA-Public Use
  Company Number: US-HBP-2022US027504

PATIENT
  Sex: Female
  Weight: 53.6 kg

DRUGS (1)
  1. TRUSELTIQ [Suspect]
     Active Substance: INFIGRATINIB
     Indication: Cholangiocarcinoma
     Dosage: 125 MILLIGRAM, QD
     Route: 048
     Dates: start: 20220513, end: 20220926

REACTIONS (13)
  - Malignant neoplasm progression [Unknown]
  - Bile duct cancer stage IV [Unknown]
  - Metastases to bone [Unknown]
  - Pain [Unknown]
  - Tumour marker increased [Unknown]
  - Renal pain [Unknown]
  - Pollakiuria [Unknown]
  - Cancer pain [Unknown]
  - Therapy interrupted [Recovered/Resolved]
  - Product distribution issue [Recovered/Resolved]
  - Nausea [Unknown]
  - Vomiting [Unknown]
  - Blood phosphorus increased [Unknown]
